FAERS Safety Report 17354868 (Version 3)
Quarter: 2021Q3

REPORT INFORMATION
  Report Type: Spontaneous
  Country: US (occurrence: US)
  Receive Date: 20200131
  Receipt Date: 20210930
  Transmission Date: 20211014
  Serious: No
  Sender: FDA-Public Use
  Company Number: US-PFIZER INC-2020041270

PATIENT
  Age: 66 Year
  Sex: Female
  Weight: 71.67 kg

DRUGS (3)
  1. LEVOTHYROXINE. [Concomitant]
     Active Substance: LEVOTHYROXINE
     Indication: HYPOTHYROIDISM
     Dosage: 0.05 MG, ONE A DAY
     Route: 048
  2. PHENELZINE SULFATE. [Suspect]
     Active Substance: PHENELZINE SULFATE
     Indication: MAJOR DEPRESSION
  3. PHENELZINE SULFATE. [Suspect]
     Active Substance: PHENELZINE SULFATE
     Indication: AGORAPHOBIA
     Dosage: 15 MG, IN THE MORNING AND EVENING
     Route: 048

REACTIONS (1)
  - Drug ineffective [Unknown]
